FAERS Safety Report 9383074 (Version 1)
Quarter: 2013Q3

REPORT INFORMATION
  Report Type: Spontaneous
  Country: BE (occurrence: BE)
  Receive Date: 20130704
  Receipt Date: 20130704
  Transmission Date: 20140515
  Serious: Yes (Other)
  Sender: FDA-Public Use
  Company Number: BE-009507513-1307BEL000204

PATIENT
  Sex: Male
  Weight: 70 kg

DRUGS (2)
  1. ESMERON [Suspect]
     Dosage: 0.6 MG/KG, SINGLE BOLUS
     Dates: start: 2013, end: 2013
  2. CISATRACURIUM BESYLATE [Interacting]
     Dosage: 5 PR 6 ML QD
     Dates: start: 2013, end: 2013

REACTIONS (1)
  - Drug interaction [Recovered/Resolved]
